FAERS Safety Report 25258526 (Version 2)
Quarter: 2025Q2

REPORT INFORMATION
  Report Type: Spontaneous
  Country: US (occurrence: US)
  Receive Date: 20250501
  Receipt Date: 20250506
  Transmission Date: 20250716
  Serious: Yes (Other)
  Sender: AMGEN
  Company Number: US-AMGEN-USASP2025083580

PATIENT
  Age: 77 Year
  Sex: Male

DRUGS (16)
  1. OTEZLA [Suspect]
     Active Substance: APREMILAST
     Indication: Psoriasis
     Dosage: 30 MILLIGRAM, BID
     Route: 048
  2. LISINOPRIL [Concomitant]
     Active Substance: LISINOPRIL
  3. AMPICILLIN [Concomitant]
     Active Substance: AMPICILLIN
  4. ATORVASTATIN [Concomitant]
     Active Substance: ATORVASTATIN
  5. BENADRYL ALLERGY [Concomitant]
     Active Substance: DIPHENHYDRAMINE HYDROCHLORIDE
  6. CELEBREX [Concomitant]
     Active Substance: CELECOXIB
  7. CULTURELLE [Concomitant]
     Active Substance: LACTOBACILLUS RHAMNOSUS
  8. KEYTRUDA [Concomitant]
     Active Substance: PEMBROLIZUMAB
  9. LEVOTHYROXINE [Concomitant]
     Active Substance: LEVOTHYROXINE
  10. CHILDRENS MOTRIN [Concomitant]
     Active Substance: IBUPROFEN
  11. PANTOPRAZOLE [Concomitant]
     Active Substance: PANTOPRAZOLE
  12. SULFASALAZINE [Concomitant]
     Active Substance: SULFASALAZINE
  13. CHILDRENS TYLENOL [Concomitant]
     Active Substance: ACETAMINOPHEN
  14. VITAMIN D [Concomitant]
     Active Substance: VITAMIN D NOS
  15. XANAX [Concomitant]
     Active Substance: ALPRAZOLAM
  16. FINASTERIDE [Concomitant]
     Active Substance: FINASTERIDE

REACTIONS (3)
  - Prostate cancer [Not Recovered/Not Resolved]
  - Thyroid cancer [Not Recovered/Not Resolved]
  - Throat cancer [Not Recovered/Not Resolved]

NARRATIVE: CASE EVENT DATE: 20250327
